FAERS Safety Report 5076794-1 (Version None)
Quarter: 2006Q3

REPORT INFORMATION
  Report Type: 
  Country: None (occurrence: None)
  Receive Date: 20060725
  Receipt Date: 20060427
  Transmission Date: 20061208
  Serious: No
  Sender: FDA-Public Use
  Company Number: 200613241BWH

PATIENT
  Sex: Male

DRUGS (2)
  1. NEXAVAR [Suspect]
     Dosage: ORAL
     Route: 048
     Dates: start: 20060328, end: 20060410
  2. BLOOD PRESSURE MEDICATION [Concomitant]

REACTIONS (6)
  - ABDOMINAL PAIN UPPER [None]
  - ERYTHEMA [None]
  - FACIAL PAIN [None]
  - FLATULENCE [None]
  - PAIN OF SKIN [None]
  - SWELLING FACE [None]
